FAERS Safety Report 25765274 (Version 1)
Quarter: 2025Q3

REPORT INFORMATION
  Report Type: Spontaneous
  Country: EU (occurrence: EU)
  Receive Date: 20250905
  Receipt Date: 20250905
  Transmission Date: 20251021
  Serious: Yes (Other)
  Sender: RANBAXY
  Company Number: EU-MINISAL02-1040623

PATIENT
  Age: 18 Year
  Sex: Female
  Weight: 45 kg

DRUGS (2)
  1. CIPROFLOXACIN [Suspect]
     Active Substance: CIPROFLOXACIN
     Indication: Cystitis
     Dosage: 500 MILLIGRAM, 3 MONTHLY, 500/DAY
     Route: 048
     Dates: start: 2015, end: 20180103
  2. PRULIFLOXACIN [Suspect]
     Active Substance: PRULIFLOXACIN
     Indication: Cystitis
     Route: 048

REACTIONS (1)
  - Vulvovaginal pain [Not Recovered/Not Resolved]

NARRATIVE: CASE EVENT DATE: 20150101
